FAERS Safety Report 19034709 (Version 1)
Quarter: 2021Q1

REPORT INFORMATION
  Report Type: Spontaneous
  Country: PT (occurrence: PT)
  Receive Date: 20210319
  Receipt Date: 20210319
  Transmission Date: 20210420
  Serious: Yes (Death)
  Sender: FDA-Public Use
  Company Number: PT-ROCHE-2788361

PATIENT

DRUGS (2)
  1. CAPECITABINE. [Suspect]
     Active Substance: CAPECITABINE
     Indication: METASTATIC NEOPLASM
     Route: 065
  2. NERATINIB [Suspect]
     Active Substance: NERATINIB
     Indication: METASTATIC NEOPLASM
     Route: 065

REACTIONS (1)
  - Pneumonia bacterial [Fatal]
